FAERS Safety Report 4352232-9 (Version None)
Quarter: 2004Q2

REPORT INFORMATION
  Report Type: 
  Country: None (occurrence: None)
  Receive Date: 20040504
  Receipt Date: 20030903
  Transmission Date: 20050107
  Serious: Yes (Hospitalization)
  Sender: FDA-Public Use
  Company Number: GB-BRISTOL-MYERS SQUIBB COMPANY-12372447

PATIENT
  Age: 48 Year
  Sex: Male
  Weight: 92 kg

DRUGS (5)
  1. BLEOMYCIN SULFATE [Suspect]
     Indication: TESTIS CANCER
     Route: 042
     Dates: start: 20030806, end: 20030806
  2. ETOPOSIDE [Suspect]
     Indication: TESTIS CANCER
     Route: 042
     Dates: start: 20030729, end: 20030731
  3. CISPLATIN [Suspect]
     Indication: TESTIS CANCER
     Dosage: INTERRUPTED ON 30-JUL-2003; RESTARTED ON 11-AUG-2003.
     Route: 042
     Dates: start: 20030729
  4. ALLOPURINOL TAB [Concomitant]
     Indication: TUMOUR LYSIS SYNDROME
     Route: 048
     Dates: start: 20030731
  5. CO-DYDRAMOL [Concomitant]
     Indication: PAIN
     Route: 048
     Dates: start: 20030601

REACTIONS (5)
  - HYPOTENSION [None]
  - NEUTROPENIC SEPSIS [None]
  - OXYGEN SATURATION DECREASED [None]
  - PYREXIA [None]
  - THROMBOCYTOPENIA [None]
